FAERS Safety Report 5455181-8 (Version None)
Quarter: 2007Q3

REPORT INFORMATION
  Report Type: 
  Country: None (occurrence: None)
  Receive Date: 20070914
  Receipt Date: 20070904
  Transmission Date: 20080115
  Serious: Yes (Disabling)
  Sender: FDA-Public Use
  Company Number: 2007SP015470

PATIENT
  Age: 39 Year
  Sex: Female
  Weight: 76 kg

DRUGS (7)
  1. TEMODAL [Suspect]
     Indication: GLIOMA
     Dosage: 320 MG;QD;PO
     Route: 048
     Dates: start: 20060901, end: 20070601
  2. LEVOTHYROX [Concomitant]
  3. ASPEGIC 325 [Concomitant]
  4. TEGRETOL [Concomitant]
  5. ALEPSAL [Concomitant]
  6. GARDAN TAB [Concomitant]
  7. KEPPRA [Concomitant]

REACTIONS (6)
  - ASTHENIA [None]
  - BALANCE DISORDER [None]
  - CONDITION AGGRAVATED [None]
  - DEAFNESS NEUROSENSORY [None]
  - DRUG TOXICITY [None]
  - HYPOACUSIS [None]
